FAERS Safety Report 23886265 (Version 1)
Quarter: 2024Q2

REPORT INFORMATION
  Report Type: Spontaneous
  Country: US (occurrence: US)
  Receive Date: 20240522
  Receipt Date: 20240522
  Transmission Date: 20240716
  Serious: No
  Sender: FDA-Public Use
  Company Number: US-MYLANLABS-2024M1042487

PATIENT
  Sex: Female

DRUGS (1)
  1. RYZUMVI [Suspect]
     Active Substance: PHENTOLAMINE MESYLATE
     Indication: Product used for unknown indication
     Dosage: UNK
     Route: 065

REACTIONS (8)
  - Discomfort [Unknown]
  - Conjunctivitis [Unknown]
  - Swelling of eyelid [Unknown]
  - Lacrimation increased [Unknown]
  - Eye pruritus [Unknown]
  - Ocular hyperaemia [Recovered/Resolved]
  - Eye irritation [Unknown]
  - Product use complaint [Recovered/Resolved]
